FAERS Safety Report 5975293-X (Version None)
Quarter: 2008Q4

REPORT INFORMATION
  Report Type: 
  Country: None (occurrence: None)
  Receive Date: 20081202
  Receipt Date: 20081125
  Transmission Date: 20090506
  Serious: Yes (Hospitalization)
  Sender: FDA-Public Use
  Company Number: US-BAYER-200837693NA

PATIENT
  Age: 31 Year
  Sex: Female
  Weight: 55 kg

DRUGS (2)
  1. MIRENA [Suspect]
     Indication: CONTRACEPTION
     Route: 015
     Dates: start: 20080626, end: 20081001
  2. VITAMIN TAB [Concomitant]

REACTIONS (3)
  - IUCD COMPLICATION [None]
  - PELVIC PAIN [None]
  - UTERINE RUPTURE [None]
